FAERS Safety Report 19741889 (Version 2)
Quarter: 2021Q3

REPORT INFORMATION
  Report Type: Spontaneous
  Country: UY (occurrence: UY)
  Receive Date: 20210825
  Receipt Date: 20210903
  Transmission Date: 20211014
  Serious: Yes (Other)
  Sender: FDA-Public Use
  Company Number: UY-NOVOPROD-838819

PATIENT
  Age: 31 Year
  Sex: Female

DRUGS (2)
  1. ISOPHANE INSULIN [Suspect]
     Active Substance: INSULIN NOS
     Indication: TYPE 1 DIABETES MELLITUS
     Dosage: UNK
     Route: 065
  2. ISOPHANE INSULIN [Suspect]
     Active Substance: INSULIN NOS
     Dosage: UNK
     Route: 065

REACTIONS (3)
  - Diabetes mellitus inadequate control [Unknown]
  - Maternal exposure during pregnancy [Recovered/Resolved]
  - Foetal distress syndrome [Unknown]
